FAERS Safety Report 22320570 (Version 1)
Quarter: 2023Q2

REPORT INFORMATION
  Report Type: Report from Study
  Country: CA (occurrence: CA)
  Receive Date: 20230515
  Receipt Date: 20230515
  Transmission Date: 20230722
  Serious: No
  Sender: FDA-Public Use
  Company Number: CA-002147023-NVSC2023CA009640

PATIENT
  Age: 56 Year
  Sex: Male

DRUGS (13)
  1. XOLAIR [Suspect]
     Active Substance: OMALIZUMAB
     Indication: Chronic spontaneous urticaria
     Dosage: 300 MG, EVERY 4 WEEKS (Q4W)
     Route: 058
     Dates: start: 20230124
  2. GLICLAZIDE [Suspect]
     Active Substance: GLICLAZIDE
     Indication: Diabetes mellitus
     Dosage: 120 MG, QD (2 X 60 MG)
     Route: 048
     Dates: start: 20220718
  3. LAMISIL [Suspect]
     Active Substance: TERBINAFINE HYDROCHLORIDE
     Indication: Chronic spontaneous urticaria
     Dosage: 1 DOSAGE FORM, PRN (1 X 1 OTHER)
     Route: 061
     Dates: start: 20220818
  4. AMOXICILLIN\CLAVULANATE POTASSIUM [Suspect]
     Active Substance: AMOXICILLIN\CLAVULANATE POTASSIUM
     Indication: Antibiotic therapy
     Dosage: 125 MG, QD
     Route: 048
     Dates: start: 20220808, end: 20220815
  5. SYMBICORT [Concomitant]
     Active Substance: BUDESONIDE\FORMOTEROL FUMARATE DIHYDRATE
     Indication: Product used for unknown indication
     Dosage: 1 DOSAGE FORM, BID
     Dates: start: 20220812
  6. PULMICORT TURBUHALER [Concomitant]
     Active Substance: BUDESONIDE
     Indication: Product used for unknown indication
     Dosage: 2 DOSAGE FORM, BID
     Dates: start: 20221104
  7. BILASTINE [Concomitant]
     Active Substance: BILASTINE
     Indication: Product used for unknown indication
     Dosage: 1 DOSAGE FORM, QD
     Route: 048
     Dates: start: 20221114
  8. BENADRYL [Concomitant]
     Active Substance: DIPHENHYDRAMINE HYDROCHLORIDE
     Indication: Product used for unknown indication
     Dosage: UNK (STRENGTH: 50)
     Route: 065
  9. BETADERM [Concomitant]
     Active Substance: BETAMETHASONE VALERATE
     Indication: Product used for unknown indication
     Dosage: 1 DOSAGE FORM, BID (STRENGTH: 0.1)
     Route: 061
     Dates: start: 20220708
  10. PREDNISONE [Concomitant]
     Active Substance: PREDNISONE
     Indication: Product used for unknown indication
     Dosage: 10 DOSAGE FORM, QD
     Route: 048
     Dates: start: 20220711, end: 20220824
  11. METRONIDAZOLE [Concomitant]
     Active Substance: METRONIDAZOLE
     Indication: Product used for unknown indication
     Dosage: DOSE: 2, TID
     Route: 048
     Dates: start: 20220711
  12. CLARITIN [Concomitant]
     Active Substance: LORATADINE
     Indication: Product used for unknown indication
     Dosage: UNK (STRENGTH: 20)
     Route: 065
  13. REACTIN [Concomitant]
     Indication: Product used for unknown indication
     Dosage: UNK ( STRENGTH: 20)
     Route: 065

REACTIONS (4)
  - Sleep disorder [Unknown]
  - Pruritus [Not Recovered/Not Resolved]
  - Urticaria [Unknown]
  - Product use in unapproved indication [Unknown]
